FAERS Safety Report 13494959 (Version 2)
Quarter: 2017Q2

REPORT INFORMATION
  Report Type: Spontaneous
  Country: US (occurrence: US)
  Receive Date: 20170428
  Receipt Date: 20170526
  Transmission Date: 20170830
  Serious: Yes (Other)
  Sender: FDA-Public Use
  Company Number: US-APOTEX-2017AP010661

PATIENT
  Age: 43 Year
  Sex: Female

DRUGS (4)
  1. HYDROCODONE [Concomitant]
     Active Substance: HYDROCODONE
     Indication: PRODUCT USED FOR UNKNOWN INDICATION
     Dosage: UNK
     Route: 065
  2. FENTANYL. [Suspect]
     Active Substance: FENTANYL
     Dosage: 50 ?G, EVERY 48 HOURS
     Route: 062
  3. FENTANYL. [Suspect]
     Active Substance: FENTANYL
     Dosage: 75 ?G, EVERY 72 HOURS
     Route: 062
  4. FENTANYL. [Suspect]
     Active Substance: FENTANYL
     Indication: PAIN MANAGEMENT
     Dosage: 25 ?G, UNK
     Route: 062
     Dates: start: 2017

REACTIONS (4)
  - Withdrawal syndrome [Not Recovered/Not Resolved]
  - Product quality issue [Unknown]
  - Apparent death [Not Recovered/Not Resolved]
  - Drug ineffective [Not Recovered/Not Resolved]

NARRATIVE: CASE EVENT DATE: 20170407
